FAERS Safety Report 6864852-8 (Version None)
Quarter: 2010Q3

REPORT INFORMATION
  Report Type: 
  Country: None (occurrence: None)
  Receive Date: 20100721
  Receipt Date: 20080524
  Transmission Date: 20110219
  Serious: No
  Sender: FDA-Public Use
  Company Number: US-PFIZER INC-2008031706

PATIENT
  Sex: Female
  Weight: 50 kg

DRUGS (1)
  1. CHANTIX [Suspect]
     Indication: SMOKING CESSATION THERAPY
     Dates: start: 20080101, end: 20080201

REACTIONS (4)
  - ABNORMAL DREAMS [None]
  - CONSTIPATION [None]
  - INITIAL INSOMNIA [None]
  - NAUSEA [None]
